FAERS Safety Report 25540025 (Version 1)
Quarter: 2025Q3

REPORT INFORMATION
  Report Type: Spontaneous
  Country: US (occurrence: US)
  Receive Date: 20250710
  Receipt Date: 20250710
  Transmission Date: 20251021
  Serious: No
  Sender: Thea Pharma
  Company Number: US-THEA-2025000713

PATIENT
  Age: 67 Year
  Sex: Female

DRUGS (3)
  1. IYUZEH [Suspect]
     Active Substance: LATANOPROST
     Indication: Angle closure glaucoma
     Dosage: IN BOTH EYES
     Route: 047
     Dates: start: 202403
  2. ZIOPTAN [Suspect]
     Active Substance: TAFLUPROST
     Indication: Angle closure glaucoma
     Route: 047
     Dates: start: 202306
  3. ALPHAGAN P [Concomitant]
     Active Substance: BRIMONIDINE TARTRATE
     Indication: Product used for unknown indication

REACTIONS (6)
  - Vision blurred [Not Recovered/Not Resolved]
  - Eye irritation [Not Recovered/Not Resolved]
  - Inappropriate schedule of product administration [Unknown]
  - Product use in unapproved indication [Unknown]
  - Off label use [Unknown]
  - Disorientation [Unknown]

NARRATIVE: CASE EVENT DATE: 20230601
